FAERS Safety Report 7891336 (Version 6)
Quarter: 2020Q3

REPORT INFORMATION
  Report Type: Report from Study
  Country: BG (occurrence: BG)
  Receive Date: 20110408
  Receipt Date: 20111228
  Transmission Date: 20201105
  Serious: Yes (Hospitalization)
  Sender: FDA-Public Use
  Company Number: BG-JNJFOC-20110400944

PATIENT
  Age: 35 Year
  Sex: Female
  Weight: 57 kg

DRUGS (7)
  1. GOLIMUMAB [Suspect]
     Active Substance: GOLIMUMAB
     Indication: COLITIS ULCERATIVE
     Route: 058
  2. PLACEBO [Suspect]
     Active Substance: UNSPECIFIED INGREDIENT
     Indication: COLITIS ULCERATIVE
     Route: 058
     Dates: start: 20100809, end: 20110223
  3. FENISTIL [Concomitant]
     Active Substance: DIMETHINDENE
     Route: 048
     Dates: start: 20110216
  4. DIPROSALIC [Concomitant]
     Active Substance: BETAMETHASONE DIPROPIONATE
     Route: 061
     Dates: start: 20110216
  5. GOLIMUMAB [Suspect]
     Active Substance: GOLIMUMAB
     Indication: COLITIS ULCERATIVE
     Route: 058
     Dates: start: 20101130, end: 20110223
  6. MESALAMINE. [Concomitant]
     Active Substance: MESALAMINE
     Indication: COLITIS ULCERATIVE
     Route: 048
     Dates: start: 200906
  7. NORGESTIMATE AND ETHINYL ESTRADIOL [Concomitant]
     Active Substance: ETHINYL ESTRADIOL\NORGESTIMATE
     Route: 048
     Dates: start: 201004

REACTIONS (2)
  - Streptococcus test positive [None]
  - Drug eruption [Not Recovered/Not Resolved]

NARRATIVE: CASE EVENT DATE: 20110325
